FAERS Safety Report 11722778 (Version 1)
Quarter: 2015Q4

REPORT INFORMATION
  Report Type: Spontaneous
  Country: US (occurrence: None)
  Receive Date: 20151110
  Receipt Date: 20151110
  Transmission Date: 20160304
  Serious: Yes (Disabling)
  Sender: FDA-Public Use
  Company Number: None

PATIENT
  Age: 46 Year
  Sex: Female
  Weight: 56.7 kg

DRUGS (11)
  1. CIPROFLOXACIN 500 MG GENERIC [Suspect]
     Active Substance: CIPROFLOXACIN
     Indication: SINUSITIS
     Dosage: 1 PILL
     Route: 048
     Dates: start: 20070223, end: 20070225
  2. MAGNESIUM [Concomitant]
     Active Substance: MAGNESIUM
  3. GRAPE SEED EXTRACT AND/OR MANUKA HONEY [Concomitant]
  4. TURMERIC AND/OR GINGER [Concomitant]
  5. MULTI VITAMIN [Concomitant]
     Active Substance: VITAMINS
  6. OLIVE LEAF EXTRACT [Concomitant]
  7. KRILL OIL [Concomitant]
     Active Substance: DIETARY SUPPLEMENT
  8. CALCIUM [Concomitant]
     Active Substance: CALCIUM
  9. QUERCETIN [Concomitant]
     Active Substance: QUERCETIN
  10. DIGESTIVE ENZYMES [Concomitant]
     Active Substance: UNSPECIFIED INGREDIENT
  11. TOPRICIN [Concomitant]

REACTIONS (40)
  - Judgement impaired [None]
  - Tendon pain [None]
  - Panic attack [None]
  - Upper motor neurone lesion [None]
  - Amnesia [None]
  - Photophobia [None]
  - Dyspnoea [None]
  - Intracranial pressure increased [None]
  - Deafness [None]
  - Head discomfort [None]
  - Fatigue [None]
  - Dissociation [None]
  - Rhabdomyolysis [None]
  - Vision blurred [None]
  - Disturbance in attention [None]
  - Hallucination, auditory [None]
  - Balance disorder [None]
  - Body temperature increased [None]
  - Pain [None]
  - Asthenia [None]
  - Hypoglycaemia [None]
  - Rotator cuff syndrome [None]
  - Abdominal pain [None]
  - Disorientation [None]
  - Muscle twitching [None]
  - Neuralgia [None]
  - Alopecia [None]
  - Liver injury [None]
  - Insomnia [None]
  - Intervertebral disc degeneration [None]
  - Anxiety [None]
  - Depersonalisation [None]
  - Vitreous floaters [None]
  - Heart rate irregular [None]
  - Visual impairment [None]
  - Arthralgia [None]
  - Tremor [None]
  - Hypothyroidism [None]
  - Depression [None]
  - Parosmia [None]

NARRATIVE: CASE EVENT DATE: 20070223
